FAERS Safety Report 15589674 (Version 1)
Quarter: 2018Q4

REPORT INFORMATION
  Report Type: Spontaneous
  Country: TW (occurrence: US)
  Receive Date: 20181106
  Receipt Date: 20181106
  Transmission Date: 20190205
  Serious: Yes (Death, Other)
  Sender: FDA-Public Use
  Company Number: TW-ALEMBIC PHARMACUETICALS LIMITED-2018SCAL000819

PATIENT

DRUGS (1)
  1. METRONIDAZOLE. [Suspect]
     Active Substance: METRONIDAZOLE
     Indication: OSTEOMYELITIS
     Dosage: 132 MILLIGRAM
     Route: 042

REACTIONS (2)
  - Coma [Unknown]
  - Toxic encephalopathy [Fatal]
